FAERS Safety Report 12880425 (Version 2)
Quarter: 2018Q2

REPORT INFORMATION
  Report Type: Report from Study
  Country: KR (occurrence: KR)
  Receive Date: 20161025
  Receipt Date: 20180522
  Transmission Date: 20180711
  Serious: Yes (Hospitalization)
  Sender: FDA-Public Use
  Company Number: KR-ROCHE-1846095

PATIENT
  Age: 40 Year
  Sex: Female

DRUGS (20)
  1. TOCILIZUMAB. [Suspect]
     Active Substance: TOCILIZUMAB
     Indication: RHEUMATOID ARTHRITIS
     Route: 042
     Dates: start: 20160716
  2. ULTRACET SEMI [Concomitant]
     Indication: RHEUMATOID ARTHRITIS
     Dosage: 3 TAB
     Route: 065
     Dates: start: 20160719, end: 20160719
  3. METHOTREXATE. [Concomitant]
     Active Substance: METHOTREXATE
     Indication: RHEUMATOID ARTHRITIS
     Route: 065
     Dates: start: 20160922
  4. ZOLPILAM [Concomitant]
     Indication: INSOMNIA
     Route: 065
     Dates: start: 20160526, end: 20160815
  5. CELEBREX [Concomitant]
     Active Substance: CELECOXIB
     Indication: RHEUMATOID ARTHRITIS
     Route: 065
     Dates: start: 20150430, end: 20150815
  6. MECOBALAMIN [Concomitant]
     Active Substance: METHYLCOBALAMIN
     Route: 065
     Dates: start: 20160718, end: 20160815
  7. SINIL FOLIC ACID [Concomitant]
     Route: 065
     Dates: start: 20151205, end: 20160815
  8. TRIDOL [Concomitant]
     Active Substance: TRAMADOL HYDROCHLORIDE
     Indication: RHEUMATOID ARTHRITIS
     Route: 065
     Dates: start: 20160717, end: 20160717
  9. ULTRACET SEMI [Concomitant]
     Indication: RHEUMATOID ARTHRITIS
     Dosage: 2 TAB
     Route: 065
     Dates: start: 20160720, end: 20160815
  10. TOCILIZUMAB. [Suspect]
     Active Substance: TOCILIZUMAB
     Route: 042
     Dates: start: 20160924
  11. FERROBA-U [Concomitant]
     Indication: ANAEMIA
     Route: 065
     Dates: start: 20160718, end: 20160815
  12. GANAKHAN [Concomitant]
     Indication: GASTRITIS
     Route: 065
     Dates: start: 20160616, end: 20160810
  13. METHOTREXATE. [Concomitant]
     Active Substance: METHOTREXATE
     Indication: RHEUMATOID ARTHRITIS
     Route: 065
     Dates: start: 20160227, end: 20160815
  14. TRIDOL [Concomitant]
     Active Substance: TRAMADOL HYDROCHLORIDE
     Indication: RHEUMATOID ARTHRITIS
     Route: 065
     Dates: start: 20160719, end: 20160719
  15. TRIDOL [Concomitant]
     Active Substance: TRAMADOL HYDROCHLORIDE
     Indication: RHEUMATOID ARTHRITIS
     Route: 065
     Dates: start: 20160716, end: 20160716
  16. RISENEX M [Concomitant]
     Dosage: 1TAB/4WKS
     Route: 065
     Dates: start: 20160720, end: 20160720
  17. TRIDOL [Concomitant]
     Active Substance: TRAMADOL HYDROCHLORIDE
     Indication: RHEUMATOID ARTHRITIS
     Route: 065
     Dates: start: 20160720, end: 20160720
  18. PARIET [Concomitant]
     Active Substance: RABEPRAZOLE SODIUM
     Indication: GASTRITIS
     Route: 065
     Dates: start: 20160428, end: 20160815
  19. ENTELON [Concomitant]
     Indication: PERIPHERAL VENOUS DISEASE
     Route: 065
     Dates: start: 20150430, end: 20160810
  20. MUCOSTA [Concomitant]
     Active Substance: REBAMIPIDE
     Indication: GASTRITIS
     Route: 065
     Dates: start: 20160616, end: 20160810

REACTIONS (1)
  - Gastrointestinal obstruction [Recovered/Resolved]

NARRATIVE: CASE EVENT DATE: 20160721
